FAERS Safety Report 6878924-5 (Version None)
Quarter: 2010Q3

REPORT INFORMATION
  Report Type: 
  Country: None (occurrence: None)
  Receive Date: 20100728
  Receipt Date: 20100720
  Transmission Date: 20110219
  Serious: Yes (Death)
  Sender: FDA-Public Use
  Company Number: JP-BAYER-201013584BYL

PATIENT
  Age: 36 Year
  Sex: Male
  Weight: 68 kg

DRUGS (22)
  1. NEXAVAR [Suspect]
     Indication: HEPATIC NEOPLASM MALIGNANT
     Dosage: UNIT DOSE: 200 MG
     Route: 048
     Dates: start: 20100611, end: 20100617
  2. NEXAVAR [Suspect]
     Dosage: UNIT DOSE: 200 MG
     Route: 048
     Dates: start: 20100618, end: 20100619
  3. BARACLUDE [Concomitant]
     Route: 048
     Dates: start: 20091116, end: 20100719
  4. OMEPRAL [Concomitant]
     Route: 048
     Dates: start: 20091209, end: 20100709
  5. MAGMITT [Concomitant]
     Route: 048
     Dates: start: 20100318, end: 20100714
  6. NOVAMIN [Concomitant]
     Route: 048
     Dates: start: 20100601, end: 20100630
  7. ENTERONON R [Concomitant]
     Route: 048
     Dates: start: 20100619, end: 20100627
  8. ENTERONON R [Concomitant]
     Route: 048
     Dates: start: 20100411, end: 20100613
  9. BIOFERMIN COMBINED DRUG [Concomitant]
     Route: 048
     Dates: start: 20100614, end: 20100618
  10. OXYCONTIN [Concomitant]
     Route: 048
     Dates: start: 20100611, end: 20100616
  11. OXINORM [Concomitant]
     Dosage: 2.5-7.5MG/DAY
     Route: 048
     Dates: start: 20100611, end: 20100719
  12. CELECOX [Concomitant]
     Route: 048
     Dates: start: 20100611, end: 20100619
  13. ACETAMINOPHEN [Concomitant]
     Route: 048
     Dates: start: 20100616, end: 20100619
  14. DUROTEP [Concomitant]
     Dosage: TOTAL DAILY DOSE: 2.1 MG
     Route: 062
     Dates: start: 20100617, end: 20100719
  15. RESTAMIN [Concomitant]
     Route: 061
     Dates: start: 20100618, end: 20100619
  16. PURSENNID [Concomitant]
     Route: 048
     Dates: start: 20100614, end: 20100620
  17. KETOPROFEN [Concomitant]
     Route: 061
     Dates: start: 20100606, end: 20100719
  18. PRIMPERAN TAB [Concomitant]
     Route: 042
     Dates: start: 20100612, end: 20100612
  19. PRIMPERAN TAB [Concomitant]
     Route: 042
     Dates: start: 20100613, end: 20100613
  20. PRIMPERAN TAB [Concomitant]
     Route: 042
     Dates: start: 20100617, end: 20100617
  21. ZOMETA [Concomitant]
     Route: 042
     Dates: start: 20100615, end: 20100615
  22. WYSTAL [Concomitant]
     Dosage: UNIT DOSE: 1 G
     Route: 042
     Dates: start: 20100617, end: 20100625

REACTIONS (1)
  - HEPATIC FUNCTION ABNORMAL [None]
